FAERS Safety Report 9374484 (Version 4)
Quarter: 2014Q2

REPORT INFORMATION
  Report Type: Report from Study
  Country: AU (occurrence: AU)
  Receive Date: 20130628
  Receipt Date: 20140625
  Transmission Date: 20141212
  Serious: Yes (Other)
  Sender: FDA-Public Use
  Company Number: PHHY2013AU066333

PATIENT
  Age: 81 Year
  Sex: Female

DRUGS (3)
  1. SANDOSTATIN LAR [Suspect]
     Indication: CARCINOID SYNDROME
     Dosage: 60 MG, UNK
     Route: 030
     Dates: start: 20100121, end: 201305
  2. SANDOSTATIN LAR [Suspect]
     Dosage: 90 MG, UNK
     Route: 030
     Dates: start: 20130524
  3. SANDOSTATIN LAR [Suspect]
     Dosage: 60 MG, UNK
     Route: 030
     Dates: start: 20140418

REACTIONS (6)
  - Blood pressure decreased [Recovered/Resolved]
  - Syncope [Recovered/Resolved]
  - Dizziness [Unknown]
  - Pallor [Unknown]
  - Asthenia [Unknown]
  - Fatigue [Unknown]
